FAERS Safety Report 16946573 (Version 1)
Quarter: 2019Q4

REPORT INFORMATION
  Report Type: Spontaneous
  Country: US (occurrence: US)
  Receive Date: 20190830
  Receipt Date: 20190830
  Transmission Date: 20200122
  Serious: No
  Sender: FDA-Public Use
  Company Number: None

PATIENT
  Sex: Female

DRUGS (1)
  1. IBRANCE [Suspect]
     Active Substance: PALBOCICLIB
     Indication: BONE CANCER METASTATIC
     Dosage: ?          OTHER DOSE:100MG FOR 21 DAYS ;?
     Route: 048
     Dates: start: 20190712

REACTIONS (2)
  - Nausea [None]
  - Fatigue [None]
